FAERS Safety Report 20335826 (Version 2)
Quarter: 2022Q1

REPORT INFORMATION
  Report Type: Spontaneous
  Country: JP (occurrence: JP)
  Receive Date: 20220114
  Receipt Date: 20220203
  Transmission Date: 20220424
  Serious: Yes (Other)
  Sender: FDA-Public Use
  Company Number: JP-GLAXOSMITHKLINE-JP2022JPN005166

PATIENT
  Age: 3 Decade
  Sex: Male

DRUGS (15)
  1. LAMICTAL [Suspect]
     Active Substance: LAMOTRIGINE
     Indication: Psychiatric symptom
     Dosage: 200 MG
  2. LAMICTAL [Suspect]
     Active Substance: LAMOTRIGINE
     Indication: Schizophrenia
  3. CLOZAPINE [Concomitant]
     Active Substance: CLOZAPINE
     Indication: Schizophrenia
     Dosage: UNK
  4. CLOZAPINE [Concomitant]
     Active Substance: CLOZAPINE
     Dosage: 600 MG
  5. CLOZAPINE [Concomitant]
     Active Substance: CLOZAPINE
     Dosage: 450 MG
  6. ARIPIPRAZOLE [Concomitant]
     Active Substance: ARIPIPRAZOLE
     Indication: Hallucination, auditory
     Dosage: UNK
  7. ARIPIPRAZOLE [Concomitant]
     Active Substance: ARIPIPRAZOLE
     Indication: Persecutory delusion
  8. ARIPIPRAZOLE [Concomitant]
     Active Substance: ARIPIPRAZOLE
     Indication: Schizophrenia
  9. BLONANSERIN [Concomitant]
     Active Substance: BLONANSERIN
     Indication: Hallucination, auditory
     Dosage: UNK
  10. BLONANSERIN [Concomitant]
     Active Substance: BLONANSERIN
     Indication: Persecutory delusion
  11. BLONANSERIN [Concomitant]
     Active Substance: BLONANSERIN
     Indication: Schizophrenia
  12. OLANZAPINE [Concomitant]
     Active Substance: OLANZAPINE
     Indication: Hallucination, auditory
     Dosage: UNK
  13. OLANZAPINE [Concomitant]
     Active Substance: OLANZAPINE
     Indication: Persecutory delusion
  14. OLANZAPINE [Concomitant]
     Active Substance: OLANZAPINE
     Indication: Schizophrenia
  15. GUANFACINE HYDROCHLORIDE [Concomitant]
     Active Substance: GUANFACINE HYDROCHLORIDE
     Indication: Attention deficit hyperactivity disorder
     Dosage: 3 MG

REACTIONS (4)
  - Gaze palsy [Unknown]
  - Neutrophil count decreased [Recovering/Resolving]
  - Impulsive behaviour [Unknown]
  - Product use in unapproved indication [Unknown]
